FAERS Safety Report 7144922-X (Version None)
Quarter: 2010Q4

REPORT INFORMATION
  Report Type: 
  Country: None (occurrence: None)
  Receive Date: 20101122
  Receipt Date: 20101116
  Transmission Date: 20110411
  Serious: Yes (Life-Threatening, Hospitalization, Disabling)
  Sender: FDA-Public Use
  Company Number: 2010SP060460

PATIENT
  Age: 18 Year
  Sex: Female
  Weight: 57 kg

DRUGS (1)
  1. DESOGESTREL/ETHINYL ESTRADIOL [Suspect]
     Indication: PRODUCT USED FOR UNKNOWN INDICATION
     Dosage: PO
     Route: 048

REACTIONS (23)
  - ABDOMINAL PAIN UPPER [None]
  - ALOPECIA [None]
  - ASTHENIA [None]
  - BACK PAIN [None]
  - CHEST PAIN [None]
  - DIARRHOEA [None]
  - DYSPNOEA EXERTIONAL [None]
  - FATIGUE [None]
  - FLUSHING [None]
  - GENITAL PAIN [None]
  - HYPERHIDROSIS [None]
  - HYPERTENSION [None]
  - HYPOAESTHESIA [None]
  - HYPOAESTHESIA FACIAL [None]
  - INSOMNIA [None]
  - LOSS OF CONSCIOUSNESS [None]
  - MONONUCLEOSIS HETEROPHILE TEST [None]
  - PALPITATIONS [None]
  - POLLAKIURIA [None]
  - RENAL ATROPHY [None]
  - RENAL HYPERTROPHY [None]
  - SENSE OF OPPRESSION [None]
  - WEIGHT DECREASED [None]
